FAERS Safety Report 7610332-1 (Version None)
Quarter: 2011Q3

REPORT INFORMATION
  Report Type: 
  Country: None (occurrence: None)
  Receive Date: 20110707
  Receipt Date: 20110623
  Transmission Date: 20111222
  Serious: Yes (Other)
  Sender: FDA-Public Use
  Company Number: 2011BI005925

PATIENT

DRUGS (2)
  1. RITUXIMAB (RITUXIMAB) [Suspect]
     Dosage: 450 MG X1
     Dates: start: 20040429, end: 20040429
  2. ZEVALIN [Suspect]
     Indication: NON-HODGKIN'S LYMPHOMA
     Dosage: X1
     Dates: start: 20040506, end: 20040506

REACTIONS (1)
  - BREAST CANCER [None]
